FAERS Safety Report 23089135 (Version 1)
Quarter: 2023Q4

REPORT INFORMATION
  Report Type: Report from Study
  Country: KR (occurrence: KR)
  Receive Date: 20231020
  Receipt Date: 20231020
  Transmission Date: 20240110
  Serious: Yes (Other)
  Sender: FDA-Public Use
  Company Number: KR-MYLANLABS-2023M1107931

PATIENT
  Sex: Female
  Weight: 47.7 kg

DRUGS (21)
  1. TRASTUZUMAB [Suspect]
     Active Substance: TRASTUZUMAB
     Indication: HER2 positive breast cancer
     Dosage: 381 MILLIGRAM
     Route: 042
     Dates: start: 20210526, end: 20210526
  2. TRASTUZUMAB [Suspect]
     Active Substance: TRASTUZUMAB
     Dosage: 286 MILLIGRAM
     Route: 042
     Dates: start: 20210616, end: 20210616
  3. TRASTUZUMAB [Suspect]
     Active Substance: TRASTUZUMAB
     Dosage: 286 MILLIGRAM (03-MAR-2022 00:00)
     Route: 042
     Dates: end: 20220303
  4. TRASTUZUMAB [Suspect]
     Active Substance: TRASTUZUMAB
     Dosage: 286 MILLIGRAM (10-FEB-2022 00:00)
     Route: 042
     Dates: end: 20220210
  5. TRASTUZUMAB [Suspect]
     Active Substance: TRASTUZUMAB
     Dosage: 286 MILLIGRAM (18-JAN-2022 00:00)
     Route: 042
     Dates: end: 20220118
  6. TRASTUZUMAB [Suspect]
     Active Substance: TRASTUZUMAB
     Dosage: 286 MILLIGRAM (28-DEC-2021 00:00)
     Route: 042
     Dates: end: 20211228
  7. TRASTUZUMAB [Suspect]
     Active Substance: TRASTUZUMAB
     Dosage: 286 MILLIGRAM (02-DEC-2021 00:00)
     Route: 042
     Dates: end: 20211202
  8. TRASTUZUMAB [Suspect]
     Active Substance: TRASTUZUMAB
     Dosage: 286 MILLIGRAM (11-NOV-2021 00:00)
     Route: 042
     Dates: end: 20211111
  9. TRASTUZUMAB [Suspect]
     Active Substance: TRASTUZUMAB
     Dosage: 286 MILLIGRAM (21-OCT-2021 00:00)
     Route: 042
     Dates: end: 20211021
  10. TRASTUZUMAB [Suspect]
     Active Substance: TRASTUZUMAB
     Dosage: 286 MILLIGRAM
     Route: 042
     Dates: start: 20210707, end: 20210707
  11. TRASTUZUMAB [Suspect]
     Active Substance: TRASTUZUMAB
     Dosage: 286 MILLIGRAM
     Route: 042
     Dates: start: 20210728, end: 20210728
  12. TRASTUZUMAB [Suspect]
     Active Substance: TRASTUZUMAB
     Dosage: 286 MILLIGRAM
     Route: 042
     Dates: start: 20210818, end: 20210818
  13. TRASTUZUMAB [Suspect]
     Active Substance: TRASTUZUMAB
     Dosage: 286 MILLIGRAM (09-SEP-2021 00:00)
     Route: 042
     Dates: end: 20210909
  14. TRASTUZUMAB [Suspect]
     Active Substance: TRASTUZUMAB
     Dosage: 286 MILLIGRAM (30-SEP-2021 00:00)
     Route: 042
     Dates: end: 20210930
  15. OTILONIUM BROMIDE [Concomitant]
     Active Substance: OTILONIUM BROMIDE
     Indication: Colitis
     Dosage: UNK (03-SEP-2021)
     Route: 048
     Dates: end: 20210910
  16. ACETAMINOPHEN [Concomitant]
     Active Substance: ACETAMINOPHEN
     Indication: Pain prophylaxis
     Dosage: UNK (03-SEP-2021 00:00)
     Route: 048
     Dates: end: 20210910
  17. RABEPRAZOLE SODIUM [Concomitant]
     Active Substance: RABEPRAZOLE SODIUM
     Indication: Prophylaxis against gastrointestinal ulcer
     Dosage: UNK
     Route: 048
     Dates: start: 20191217
  18. FUROSEMIDE [Concomitant]
     Active Substance: FUROSEMIDE
     Indication: Acute myocardial infarction
     Dosage: UNK
     Route: 048
     Dates: start: 20210126
  19. LIPITOR [Concomitant]
     Active Substance: ATORVASTATIN CALCIUM
     Indication: Acute myocardial infarction
     Dosage: UNK
     Route: 048
     Dates: start: 20191207
  20. CARVEDILOL [Concomitant]
     Active Substance: CARVEDILOL
     Indication: Acute myocardial infarction
     Dosage: UNK
     Route: 048
     Dates: start: 20191208
  21. ASPIRIN [Concomitant]
     Active Substance: ASPIRIN
     Indication: Acute myocardial infarction
     Dosage: UNK
     Route: 048
     Dates: start: 20191207

REACTIONS (1)
  - Colitis [Not Recovered/Not Resolved]

NARRATIVE: CASE EVENT DATE: 20210827
